FAERS Safety Report 15001839 (Version 2)
Quarter: 2018Q2

REPORT INFORMATION
  Report Type: Spontaneous
  Country: GB (occurrence: FR)
  Receive Date: 20180612
  Receipt Date: 20180626
  Transmission Date: 20180711
  Serious: Yes (Other)
  Sender: FDA-Public Use
  Company Number: FR-TEVA-2018-FR-906104

PATIENT
  Age: 48 Year
  Sex: Female

DRUGS (9)
  1. LEPONEX [Suspect]
     Active Substance: CLOZAPINE
     Dosage: 75 MG, QD
     Route: 048
     Dates: start: 20180408
  2. SOLIAN [Concomitant]
     Active Substance: AMISULPRIDE
     Indication: PRODUCT USED FOR UNKNOWN INDICATION
     Dosage: 3 DOSAGE FORMS DAILY;
     Route: 048
  3. TERCIAN [Concomitant]
     Active Substance: CYAMEMAZINE
     Indication: PRODUCT USED FOR UNKNOWN INDICATION
     Dosage: 3.5 DOSAGE FORMS DAILY; 3.5 DF, QD
     Route: 048
  4. ZOLOFT [Concomitant]
     Active Substance: SERTRALINE HYDROCHLORIDE
     Indication: PRODUCT USED FOR UNKNOWN INDICATION
     Dosage: 3 DOSAGE FORMS DAILY; 3 DF, QD
     Route: 048
  5. ALPRAZOLAM. [Concomitant]
     Active Substance: ALPRAZOLAM
     Indication: PRODUCT USED FOR UNKNOWN INDICATION
     Dosage: 3 DOSAGE FORMS DAILY;
     Route: 048
  6. OLANZAPINE. [Suspect]
     Active Substance: OLANZAPINE
     Indication: PRODUCT USED FOR UNKNOWN INDICATION
     Dosage: UNK
     Route: 065
     Dates: end: 201802
  7. LEPONEX [Suspect]
     Active Substance: CLOZAPINE
     Dosage: 50 MILLIGRAM DAILY;
     Route: 048
     Dates: start: 20180402
  8. LEPONEX [Suspect]
     Active Substance: CLOZAPINE
     Dosage: 75 MILLIGRAM DAILY;
     Route: 048
     Dates: start: 20180408
  9. LEPONEX [Suspect]
     Active Substance: CLOZAPINE
     Dosage: UNK
     Route: 048
     Dates: start: 201707

REACTIONS (2)
  - Condition aggravated [Not Recovered/Not Resolved]
  - Lymphopenia [Not Recovered/Not Resolved]
